FAERS Safety Report 9425157 (Version 1)
Quarter: 2013Q3

REPORT INFORMATION
  Report Type: Spontaneous
  Country: None (occurrence: US)
  Receive Date: 20130729
  Receipt Date: 20130729
  Transmission Date: 20140515
  Serious: No
  Sender: FDA-Public Use
  Company Number: US-TEVA-421806USA

PATIENT
  Age: 66 Year
  Sex: Female
  Weight: 56.75 kg

DRUGS (2)
  1. QNASL [Suspect]
     Indication: SINUSITIS
     Dates: start: 20130719
  2. LEVOFLOXACIN [Concomitant]
     Indication: SINUSITIS
     Dates: start: 20130719

REACTIONS (4)
  - Rash generalised [Unknown]
  - Pruritus generalised [Unknown]
  - Headache [Unknown]
  - Dizziness [Unknown]
